FAERS Safety Report 8943254 (Version 2)
Quarter: 2013Q1

REPORT INFORMATION
  Report Type: Spontaneous
  Country: GB (occurrence: GB)
  Receive Date: 20121204
  Receipt Date: 20130131
  Transmission Date: 20140127
  Serious: Yes (Death)
  Sender: FDA-Public Use
  Company Number: GB-MERCK-1211GBR012118

PATIENT
  Age: 77 Year
  Sex: Male

DRUGS (8)
  1. SYCREST [Suspect]
     Indication: BIPOLAR I DISORDER
     Dosage: 5 MG, BID
     Route: 060
     Dates: start: 20121023
  2. ARIPIPRAZOLE [Concomitant]
     Dosage: 30 MG, QD
     Dates: end: 201210
  3. ATENOLOL [Concomitant]
  4. SIMVASTATIN [Concomitant]
     Route: 048
  5. NITRAZEPAM [Concomitant]
     Dosage: 5 MG, QD
  6. CARBAMAZEPINE [Concomitant]
     Indication: AFFECTIVE DISORDER
     Dosage: 300 MG, QD
  7. NITROGLYCERIN [Concomitant]
  8. SODIUM CHLORIDE [Concomitant]

REACTIONS (3)
  - Choking [Fatal]
  - Salivary gland pain [Unknown]
  - Dysarthria [Unknown]
